FAERS Safety Report 7992179-X (Version None)
Quarter: 2011Q4

REPORT INFORMATION
  Report Type: 
  Country: None (occurrence: None)
  Receive Date: 20111219
  Receipt Date: 20110419
  Transmission Date: 20120403
  Serious: No
  Sender: FDA-Public Use
  Company Number: US-ASTRAZENECA-2011SE23045

PATIENT
  Age: 60 Year
  Sex: Female

DRUGS (1)
  1. ROSUVASTATIN [Suspect]
     Route: 048

REACTIONS (2)
  - THERAPEUTIC RESPONSE UNEXPECTED WITH DRUG SUBSTITUTION [None]
  - BLOOD CHOLESTEROL INCREASED [None]
